FAERS Safety Report 6681592-9 (Version None)
Quarter: 2010Q2

REPORT INFORMATION
  Report Type: 
  Country: None (occurrence: None)
  Receive Date: 20100414
  Receipt Date: 20100406
  Transmission Date: 20101027
  Serious: Yes (Hospitalization, Other)
  Sender: FDA-Public Use
  Company Number: FR-BRISTOL-MYERS SQUIBB COMPANY-14697338

PATIENT
  Age: 64 Year
  Sex: Male

DRUGS (11)
  1. GLUCOPHAGE [Interacting]
     Indication: INSULIN-REQUIRING TYPE 2 DIABETES MELLITUS
     Route: 048
     Dates: end: 20090218
  2. APROVEL [Interacting]
     Route: 048
     Dates: start: 20080601, end: 20090218
  3. PARACETAMOL [Suspect]
     Dates: start: 20090210
  4. TRIATEC [Interacting]
     Route: 048
     Dates: start: 20080610, end: 20090218
  5. BI-PROFENID [Interacting]
     Route: 048
     Dates: start: 20090210, end: 20090218
  6. XENETIX [Interacting]
     Route: 042
     Dates: start: 20090217, end: 20090218
  7. ISOPTIN [Concomitant]
  8. TAHOR [Concomitant]
  9. ESIDRIX [Concomitant]
  10. PANTOPRAZOLE [Concomitant]
     Dates: start: 20090210
  11. DI-ANTALVIC [Concomitant]
     Dates: start: 20090210

REACTIONS (9)
  - DRUG INTERACTION [None]
  - ESCHERICHIA URINARY TRACT INFECTION [None]
  - HYPERLACTACIDAEMIA [None]
  - LACTIC ACIDOSIS [None]
  - METABOLIC ACIDOSIS [None]
  - PULMONARY EMBOLISM [None]
  - RENAL FAILURE ACUTE [None]
  - RESPIRATORY DISTRESS [None]
  - VOMITING [None]
